FAERS Safety Report 12709521 (Version 1)
Quarter: 2016Q3

REPORT INFORMATION
  Report Type: Spontaneous
  Country: JP (occurrence: JP)
  Receive Date: 20160902
  Receipt Date: 20160902
  Transmission Date: 20161109
  Serious: Yes (Other)
  Sender: FDA-Public Use
  Company Number: JP-MYLANLABS-2016M1037166

PATIENT

DRUGS (3)
  1. CISPLATIN. [Suspect]
     Active Substance: CISPLATIN
     Indication: METASTATIC SQUAMOUS CELL CARCINOMA
     Dosage: 10MG/M2 ON DAYS 1 AND 8 FOLLOWED BY AT LEAST 7 DAYS OF WITHDRAWAL
     Route: 065
     Dates: start: 20071010
  2. DOCETAXEL. [Suspect]
     Active Substance: DOCETAXEL
     Indication: METASTATIC SQUAMOUS CELL CARCINOMA
     Dosage: 35MG/M2 ON DAYS 1 AND 8 FOLLOWED BY AT LEAST 7 DAYS OF WITHDRAWAL
     Route: 065
     Dates: start: 20071010
  3. GIMERACIL W/OTERACIL POTASSIUM/TEGAFUR [Suspect]
     Active Substance: GIMERACIL\OTERACIL\TEGAFUR
     Indication: METASTATIC SQUAMOUS CELL CARCINOMA
     Dosage: 80MG ON DAYS 1-14 FOLLOWED BY AT LEAST 7 DAYS OF WITHDRAWAL
     Route: 065
     Dates: start: 20071010

REACTIONS (4)
  - Mucosal inflammation [Recovered/Resolved]
  - Neutropenia [Recovered/Resolved]
  - Alopecia [Recovered/Resolved]
  - Diarrhoea [Recovered/Resolved]
